FAERS Safety Report 18044548 (Version 1)
Quarter: 2020Q3

REPORT INFORMATION
  Report Type: Spontaneous
  Country: CH (occurrence: CH)
  Receive Date: 20200720
  Receipt Date: 20200720
  Transmission Date: 20201103
  Serious: Yes (Other)
  Sender: FDA-Public Use
  Company Number: CH-GUERBET-CH-20200028

PATIENT
  Age: 48 Year
  Sex: Female
  Weight: 74 kg

DRUGS (1)
  1. DOTAREM [Suspect]
     Active Substance: GADOTERATE MEGLUMINE
     Indication: MAGNETIC RESONANCE IMAGING
     Route: 042
     Dates: start: 20200707, end: 20200707

REACTIONS (2)
  - Syncope [Unknown]
  - Cold sweat [Unknown]

NARRATIVE: CASE EVENT DATE: 20200707
